FAERS Safety Report 4647193-9 (Version None)
Quarter: 2005Q2

REPORT INFORMATION
  Report Type: 
  Country: None (occurrence: None)
  Receive Date: 20050426
  Receipt Date: 20050420
  Transmission Date: 20051028
  Serious: Yes (Death, Life-Threatening, Hospitalization)
  Sender: FDA-Public Use
  Company Number: HQWYE184418MAR05

PATIENT
  Age: 62 Year
  Sex: Male

DRUGS (16)
  1. RAPAMUNE [Suspect]
     Indication: PROPHYLAXIS AGAINST TRANSPLANT REJECTION
     Dosage: 5 MG 1X PER 1 DAY ORAL
     Route: 048
     Dates: start: 20050314, end: 20050329
  2. MYCOPHENOLATE MOFETIL (MYCOPHENOLATE MOFETIL,) [Suspect]
     Dosage: 2000 MG
     Dates: end: 20050301
  3. PREDNISONE [Suspect]
     Indication: IMMUNOSUPPRESSANT DRUG THERAPY
  4. ZENAPAX [Concomitant]
  5. INSULIN [Concomitant]
  6. METOPROLOL TARTRATE [Concomitant]
  7. RAMIPRIL [Concomitant]
  8. ROSIGLITAZONE (ROSIGLITAZONE) [Concomitant]
  9. RENAGEL (SEVELAMER) [Concomitant]
  10. GABAPENTIN [Concomitant]
  11. ERYTHROPOIETIN (ERYTHYROPOIETIN) [Concomitant]
  12. LEVOTHYROXINE SODIUM [Concomitant]
  13. SIMVASTATIN [Concomitant]
  14. DOMPERIDONE (DOMPERIDONE) [Concomitant]
  15. ASPIRIN [Concomitant]
  16. TACROLIMUS (TACROLIMUS) [Concomitant]

REACTIONS (30)
  - ABDOMINAL HAEMATOMA [None]
  - ANURIA [None]
  - CANDIDIASIS [None]
  - CLOSTRIDIAL INFECTION [None]
  - COAGULOPATHY [None]
  - COMPLICATIONS OF TRANSPLANTED KIDNEY [None]
  - DEEP VEIN THROMBOSIS [None]
  - FUNGAL INFECTION [None]
  - GENERAL PHYSICAL HEALTH DETERIORATION [None]
  - HAEMATEMESIS [None]
  - HAEMATURIA [None]
  - HYPOTENSION [None]
  - HYPOXIA [None]
  - IMMUNOSUPPRESSION [None]
  - MELAENA [None]
  - METABOLIC ACIDOSIS [None]
  - MULTI-ORGAN FAILURE [None]
  - MYOCARDIAL INFARCTION [None]
  - MYOCARDIAL ISCHAEMIA [None]
  - ODYNOPHAGIA [None]
  - OESOPHAGEAL DISCOMFORT [None]
  - OESOPHAGEAL INFECTION [None]
  - PANCYTOPENIA [None]
  - PELVIC HAEMATOMA [None]
  - PERITONEAL DIALYSIS [None]
  - RENAL TUBULAR NECROSIS [None]
  - RESPIRATORY ACIDOSIS [None]
  - RETROPERITONEAL HAEMORRHAGE [None]
  - SINUS TACHYCARDIA [None]
  - STOMACH DISCOMFORT [None]
